FAERS Safety Report 7293067-7 (Version None)
Quarter: 2011Q1

REPORT INFORMATION
  Report Type: 
  Country: None (occurrence: None)
  Receive Date: 20110215
  Receipt Date: 20101022
  Transmission Date: 20110831
  Serious: No
  Sender: FDA-Public Use
  Company Number: US-BAYER-201022887BCC

PATIENT
  Sex: Female

DRUGS (2)
  1. TOPROL-XL [Concomitant]
  2. ALEVE [Suspect]
     Indication: ARTHRITIS
     Dosage: 1 DF, UNK
     Route: 048
     Dates: start: 20101021, end: 20101021

REACTIONS (1)
  - ARTHRITIS [None]
